FAERS Safety Report 22050633 (Version 2)
Quarter: 2023Q1

REPORT INFORMATION
  Report Type: Spontaneous
  Country: FR (occurrence: None)
  Receive Date: 20230301
  Receipt Date: 20230303
  Transmission Date: 20230418
  Serious: Yes (Hospitalization, Other)
  Sender: FDA-Public Use
  Company Number: 2023A048902

PATIENT
  Age: 76 Year
  Sex: Female

DRUGS (17)
  1. OMEPRAZOLE [Suspect]
     Active Substance: OMEPRAZOLE
  2. BROMAZEPAM [Suspect]
     Active Substance: BROMAZEPAM
  3. ZOLPIDEM [Suspect]
     Active Substance: ZOLPIDEM TARTRATE
  4. MILNACIPRAN [Suspect]
     Active Substance: MILNACIPRAN
  5. TIANEPTINE [Suspect]
     Active Substance: TIANEPTINE
  6. TRAMADOL [Suspect]
     Active Substance: TRAMADOL
  7. FLECAINIDE [Suspect]
     Active Substance: FLECAINIDE
  8. CEFTRIAXONE [Suspect]
     Active Substance: CEFTRIAXONE
  9. CODEINE [Suspect]
     Active Substance: CODEINE
  10. MORPHINE [Suspect]
     Active Substance: MORPHINE
  11. NOSCAPINE [Suspect]
     Active Substance: NOSCAPINE
  12. ALPRAZOLAM [Suspect]
     Active Substance: ALPRAZOLAM
  13. ACETAMINOPHEN [Suspect]
     Active Substance: ACETAMINOPHEN
  14. VERAPAMIL [Suspect]
     Active Substance: VERAPAMIL HYDROCHLORIDE
  15. FLUOXETINE [Suspect]
     Active Substance: FLUOXETINE HYDROCHLORIDE
  16. ACETAMINOPHEN [Suspect]
     Active Substance: ACETAMINOPHEN
  17. CAFFEINE [Suspect]
     Active Substance: CAFFEINE

REACTIONS (6)
  - Toxicity to various agents [Unknown]
  - Poisoning deliberate [Unknown]
  - Hypokalaemia [Unknown]
  - Hypoglycaemia [Unknown]
  - Transaminases increased [Unknown]
  - Disturbance in attention [Unknown]
